FAERS Safety Report 8061085-7 (Version None)
Quarter: 2012Q1

REPORT INFORMATION
  Report Type: 
  Country: None (occurrence: None)
  Receive Date: 20120120
  Receipt Date: 20110401
  Transmission Date: 20120608
  Serious: No
  Sender: FDA-Public Use
  Company Number: US-ALLERGAN-1104615US

PATIENT
  Age: 65 Year
  Sex: Female

DRUGS (2)
  1. SOOTHE XP [Concomitant]
     Indication: DRY EYE
     Dosage: UNK
     Dates: start: 20110301
  2. RESTASIS [Suspect]
     Indication: DRY EYE
     Dosage: 1 GTT, BID
     Dates: start: 20110302, end: 20110315

REACTIONS (1)
  - EYE PAIN [None]
